FAERS Safety Report 5828202-8 (Version None)
Quarter: 2008Q4

REPORT INFORMATION
  Report Type: 
  Country: None (occurrence: None)
  Receive Date: 20080731
  Receipt Date: 20080731
  Transmission Date: 20090506
  Serious: Yes (Life-Threatening)
  Sender: FDA-Public Use
  Company Number: None

PATIENT
  Age: 53 Year
  Sex: Male
  Weight: 100.6985 kg

DRUGS (3)
  1. HEPARIN [Suspect]
     Indication: HAEMODIALYSIS-INDUCED SYMPTOM
     Dosage: 2000UNITS ONCE HEMODIALYSIS
     Route: 010
  2. HEPARIN [Suspect]
     Indication: STRIDOR
     Dosage: 2000UNITS ONCE HEMODIALYSIS
     Route: 010
  3. 170 H DIALYZER [Suspect]
     Indication: PRODUCT CONTAMINATION
     Dosage: ONE USE ONLY

REACTIONS (12)
  - DIALYSIS DEVICE COMPLICATION [None]
  - DRUG TOXICITY [None]
  - DYSPHONIA [None]
  - DYSPNOEA [None]
  - FIRST USE SYNDROME [None]
  - HAEMODIALYSIS-INDUCED SYMPTOM [None]
  - MUSCLE TIGHTNESS [None]
  - PARAESTHESIA ORAL [None]
  - PRODUCT CONTAMINATION [None]
  - RESPIRATORY DISTRESS [None]
  - STRIDOR [None]
  - WHEEZING [None]
